FAERS Safety Report 8223032-4 (Version None)
Quarter: 2012Q1

REPORT INFORMATION
  Report Type: 
  Country: None (occurrence: None)
  Receive Date: 20120321
  Receipt Date: 20120307
  Transmission Date: 20120608
  Serious: Yes (Other)
  Sender: FDA-Public Use
  Company Number: DE-RANBAXY-2012RR-53926

PATIENT
  Age: 13 Year
  Sex: Male
  Weight: 60 kg

DRUGS (6)
  1. MIDAZOLAM [Concomitant]
     Indication: RESTLESSNESS
     Dosage: 1 MG, UNK
     Route: 042
     Dates: start: 20110517
  2. VOMACUR [Concomitant]
     Indication: RESTLESSNESS
     Dosage: 50 MG, UNK
     Route: 048
     Dates: start: 20110517
  3. ACETAMINOPHEN [Suspect]
     Indication: SURGERY
     Dosage: UNK
     Route: 065
     Dates: start: 20110517, end: 20110519
  4. LORAZEPAM [Concomitant]
     Indication: RESTLESSNESS
     Dosage: 1 MG, UNK
     Route: 048
     Dates: start: 20110517, end: 20110519
  5. PROMETHAZINE [Concomitant]
     Indication: RESTLESSNESS
     Dosage: 30 GTT, UNK
     Route: 048
     Dates: start: 20110519
  6. KETAMINE HCL [Concomitant]
     Indication: RESTLESSNESS
     Dosage: 70 MG, UNK
     Route: 042
     Dates: start: 20110517

REACTIONS (1)
  - ACUTE HEPATIC FAILURE [None]
